FAERS Safety Report 10561534 (Version 6)
Quarter: 2015Q1

REPORT INFORMATION
  Report Type: Spontaneous
  Country: US (occurrence: US)
  Receive Date: 20141103
  Receipt Date: 20150313
  Transmission Date: 20150720
  Serious: Yes (Death, Hospitalization)
  Sender: FDA-Public Use
  Company Number: US-UNITED THERAPEUTICS-UNT-2014-009973

PATIENT
  Sex: Female

DRUGS (4)
  1. REMODULIN [Suspect]
     Active Substance: TREPROSTINIL
     Indication: PULMONARY HYPERTENSION
     Dosage: 0.024 ?G/KG, CONTINUING
     Route: 041
     Dates: start: 20140918, end: 20150115
  2. REMODULIN [Suspect]
     Active Substance: TREPROSTINIL
     Indication: PULMONARY ARTERIAL HYPERTENSION
     Dosage: 0.028 ?G/KG, CONTINUING
     Route: 041
     Dates: start: 20140918
  3. THALIDOMIDE [Concomitant]
     Active Substance: THALIDOMIDE
     Indication: PRODUCT USED FOR UNKNOWN INDICATION
  4. REMODULIN [Suspect]
     Active Substance: TREPROSTINIL
     Dosage: 5 ML, CONTINUING
     Route: 041
     Dates: start: 20140922

REACTIONS (2)
  - Plasma cell myeloma [Fatal]
  - Renal disorder [Unknown]

NARRATIVE: CASE EVENT DATE: 2014
